FAERS Safety Report 6892633-8 (Version None)
Quarter: 2010Q3

REPORT INFORMATION
  Report Type: 
  Country: None (occurrence: None)
  Receive Date: 20100731
  Receipt Date: 20080727
  Transmission Date: 20110219
  Serious: No
  Sender: FDA-Public Use
  Company Number: US-PFIZER INC-2008062986

PATIENT
  Sex: Female
  Weight: 56.8 kg

DRUGS (2)
  1. NORVASC [Suspect]
     Indication: HYPERTENSION
     Dates: start: 20080707, end: 20080711
  2. ANTIHYPERTENSIVES [Concomitant]

REACTIONS (2)
  - NAUSEA [None]
  - RASH PRURITIC [None]
